FAERS Safety Report 13189483 (Version 1)
Quarter: 2017Q1

REPORT INFORMATION
  Report Type: Spontaneous
  Country: US (occurrence: US)
  Receive Date: 20170206
  Receipt Date: 20170206
  Transmission Date: 20170428
  Serious: Yes (Hospitalization)
  Sender: FDA-Public Use
  Company Number: US-PFIZER INC-2017043591

PATIENT
  Age: 22 Year
  Sex: Female

DRUGS (4)
  1. VFEND [Suspect]
     Active Substance: VORICONAZOLE
     Indication: FUNGAL INFECTION
     Dosage: UNK
     Dates: start: 201610
  2. FYCOMPA [Interacting]
     Active Substance: PERAMPANEL
     Dosage: 8 MG, 1X/DAY
     Route: 048
     Dates: start: 2016
  3. NOXAFIL [Interacting]
     Active Substance: POSACONAZOLE
     Indication: FUNGAL INFECTION
     Dosage: UNK
     Dates: start: 2016
  4. AMPHOTERICIN B. [Concomitant]
     Active Substance: AMPHOTERICIN B
     Dosage: UNK

REACTIONS (5)
  - Drug interaction [Unknown]
  - Mental status changes [Unknown]
  - Hypotension [Unknown]
  - Somnolence [Unknown]
  - Hypothermia [Unknown]

NARRATIVE: CASE EVENT DATE: 20170101
